FAERS Safety Report 23308396 (Version 1)
Quarter: 2023Q4

REPORT INFORMATION
  Report Type: Spontaneous
  Country: US (occurrence: US)
  Receive Date: 20231218
  Receipt Date: 20231218
  Transmission Date: 20240110
  Serious: No
  Sender: FDA-Public Use
  Company Number: US-SANOFI-01871821

PATIENT
  Sex: Male

DRUGS (1)
  1. DUPIXENT [Suspect]
     Active Substance: DUPILUMAB
     Indication: Eczema
     Dosage: UNK
     Dates: start: 20231129

REACTIONS (4)
  - Eczema [Unknown]
  - Skin discolouration [Unknown]
  - Skin irritation [Unknown]
  - Pain of skin [Unknown]

NARRATIVE: CASE EVENT DATE: 20231201
